FAERS Safety Report 17542231 (Version 1)
Quarter: 2020Q1

REPORT INFORMATION
  Report Type: Spontaneous
  Country: FR (occurrence: FR)
  Receive Date: 20200313
  Receipt Date: 20200313
  Transmission Date: 20200409
  Serious: Yes (Congenital Anomaly, Other)
  Sender: FDA-Public Use
  Company Number: FR-GILEAD-2020-0454480

PATIENT
  Sex: Male
  Weight: 2 kg

DRUGS (6)
  1. ASPEGIC (ACETYLSALICYLATE LYSINE, GLYCINE) [Suspect]
     Active Substance: ASPIRIN DL-LYSINE\GLYCINE
     Indication: PRODUCT USED FOR UNKNOWN INDICATION
     Route: 064
     Dates: start: 201908, end: 20191224
  2. NORVIR [Suspect]
     Active Substance: RITONAVIR
     Indication: HIV INFECTION
     Dosage: 100 MG
     Route: 064
     Dates: start: 201905, end: 20191224
  3. TRUVADA [Suspect]
     Active Substance: EMTRICITABINE\TENOFOVIR DISOPROXIL FUMARATE
     Indication: HIV INFECTION
     Dosage: 200 MG/245 MG
     Route: 064
     Dates: start: 201905, end: 20191224
  4. DL-LYSINE [Concomitant]
     Indication: PRODUCT USED FOR UNKNOWN INDICATION
     Dosage: 160 MG, QD
     Route: 064
     Dates: start: 201908, end: 20191224
  5. SPECIAFOLDINE [Concomitant]
     Active Substance: FOLIC ACID
     Dosage: 100 MG
     Route: 064
     Dates: end: 20191224
  6. PREZISTA [Suspect]
     Active Substance: DARUNAVIR ETHANOLATE
     Indication: HIV INFECTION
     Dosage: 100 MG/ML
     Route: 064
     Dates: start: 201905, end: 20191224

REACTIONS (3)
  - Duodenal atresia [Not Recovered/Not Resolved]
  - Cryptorchism [Recovering/Resolving]
  - Foetal exposure during pregnancy [Recovered/Resolved]

NARRATIVE: CASE EVENT DATE: 201905
